FAERS Safety Report 26107761 (Version 1)
Quarter: 2025Q4

REPORT INFORMATION
  Report Type: Spontaneous
  Country: US (occurrence: None)
  Receive Date: 20251130
  Receipt Date: 20251130
  Transmission Date: 20260119
  Serious: Yes (Hospitalization)
  Sender: FDA-CTU
  Company Number: None

PATIENT
  Age: 45 Year
  Sex: Male
  Weight: 77.4 kg

DRUGS (7)
  1. NADIDE [Suspect]
     Active Substance: NADIDE
     Indication: Asthenia
     Dates: start: 20251129, end: 20251130
  2. NADIDE [Suspect]
     Active Substance: NADIDE
     Indication: Product used for unknown indication
  3. NADIDE [Suspect]
     Active Substance: NADIDE
     Indication: Immunisation
  4. TIRZEPATIDE [Concomitant]
     Active Substance: TIRZEPATIDE
  5. Bioboost plus [Concomitant]
  6. Men multivitamin [Concomitant]
  7. ZINC [Concomitant]
     Active Substance: ZINC

REACTIONS (4)
  - Vomiting [None]
  - Diarrhoea [None]
  - Abdominal pain upper [None]
  - Impaired work ability [None]

NARRATIVE: CASE EVENT DATE: 20251130
